FAERS Safety Report 12171493 (Version 1)
Quarter: 2016Q1

REPORT INFORMATION
  Report Type: Spontaneous
  Country: US (occurrence: None)
  Receive Date: 20160310
  Receipt Date: 20160310
  Transmission Date: 20160526
  Serious: Yes (Hospitalization)
  Sender: FDA-Public Use
  Company Number: None

PATIENT
  Age: 65 Year
  Sex: Female
  Weight: 68.4 kg

DRUGS (13)
  1. CARVEDILOL. [Concomitant]
     Active Substance: CARVEDILOL
  2. ALBUTEROL. [Concomitant]
     Active Substance: ALBUTEROL
  3. PHENAZOPYRIDINE. [Concomitant]
     Active Substance: PHENAZOPYRIDINE
  4. ASCORBIC ACID. [Concomitant]
     Active Substance: ASCORBIC ACID
  5. CANAGLIFLOZIN 100 MG JANSSEN PHARMACEUTICALS, INC [Suspect]
     Active Substance: CANAGLIFLOZIN
     Indication: TYPE 2 DIABETES MELLITUS
     Route: 048
     Dates: start: 20151027, end: 20160305
  6. DULOXETINE. [Concomitant]
     Active Substance: DULOXETINE
  7. FERROUS GLUCONATE [Concomitant]
     Active Substance: FERROUS GLUCONATE
  8. LORATADINE. [Concomitant]
     Active Substance: LORATADINE
  9. ALBIGLUTIDE [Concomitant]
     Active Substance: ALBIGLUTIDE
  10. LOSARTAN-HYDROCHLOROTHIAZIDE [Concomitant]
     Active Substance: HYDROCHLOROTHIAZIDE\LOSARTAN
  11. CEFUROXINE [Concomitant]
  12. ESOMEPRAZOLE [Concomitant]
     Active Substance: ESOMEPRAZOLE
  13. GLIMPERIDE [Concomitant]
     Active Substance: GLIMEPIRIDE

REACTIONS (7)
  - Urinary tract infection [None]
  - Urosepsis [None]
  - Pallor [None]
  - Vomiting [None]
  - Chills [None]
  - Pyrexia [None]
  - Nausea [None]

NARRATIVE: CASE EVENT DATE: 20160106
